FAERS Safety Report 18655191 (Version 1)
Quarter: 2020Q4

REPORT INFORMATION
  Report Type: Spontaneous
  Country: US (occurrence: US)
  Receive Date: 20201223
  Receipt Date: 20201223
  Transmission Date: 20210114
  Serious: No
  Sender: FDA-Public Use
  Company Number: None

PATIENT
  Age: 80 Year
  Sex: Male
  Weight: 77.11 kg

DRUGS (1)
  1. ALPRAZOLAM 2MG [Suspect]
     Active Substance: ALPRAZOLAM
     Indication: INSOMNIA
     Dosage: ?          QUANTITY:2 DF DOSAGE FORM;?
     Route: 048
     Dates: start: 20201014, end: 20201018

REACTIONS (4)
  - Asthenia [None]
  - Weight decreased [None]
  - Dizziness [None]
  - Product substitution issue [None]

NARRATIVE: CASE EVENT DATE: 20201018
